FAERS Safety Report 23660212 (Version 1)
Quarter: 2024Q1

REPORT INFORMATION
  Report Type: Report from Study
  Country: NL (occurrence: NL)
  Receive Date: 20240321
  Receipt Date: 20240321
  Transmission Date: 20240410
  Serious: Yes (Other)
  Sender: FDA-Public Use
  Company Number: NL-VER-202400024

PATIENT
  Age: 72 Year
  Sex: Male

DRUGS (3)
  1. TRIPTORELIN PAMOATE [Suspect]
     Active Substance: TRIPTORELIN PAMOATE
     Indication: Prostate cancer
     Dosage: 0.125 MILLIGRAM(S), 22.5 MILLIGRAM(S), 1 IN 6 MONTH).
     Route: 030
     Dates: start: 20220303
  2. TRIPTORELIN PAMOATE [Suspect]
     Active Substance: TRIPTORELIN PAMOATE
     Indication: Prostate cancer
     Dosage: 0.125 MILLIGRAM(S), 22.5 MILLIGRAM(S), 1 IN 6 MONTH.
     Route: 030
     Dates: start: 20230831
  3. TRIPTORELIN PAMOATE [Suspect]
     Active Substance: TRIPTORELIN PAMOATE
     Indication: Prostate cancer
     Dosage: 0.125 MILLIGRAM(S), 22.5 MILLIGRAM(S), 1 IN 6 MONTH.
     Route: 030
     Dates: start: 20240229

REACTIONS (2)
  - Prostatic specific antigen increased [Unknown]
  - Pyelonephritis [Recovered/Resolved]

NARRATIVE: CASE EVENT DATE: 20240104
